FAERS Safety Report 17716050 (Version 2)
Quarter: 2025Q2

REPORT INFORMATION
  Report Type: Spontaneous
  Country: DE (occurrence: DE)
  Receive Date: 20200428
  Receipt Date: 20250626
  Transmission Date: 20250716
  Serious: Yes (Other)
  Sender: AUROBINDO
  Company Number: DE-ARISTO PHARMA-MELP-OLAN-PROM-QUET-RISP202004081

PATIENT
  Age: 77 Year
  Sex: Male

DRUGS (5)
  1. OLANZAPINE [Suspect]
     Active Substance: OLANZAPINE
     Indication: Schizophrenia
     Route: 065
  2. QUETIAPINE [Suspect]
     Active Substance: QUETIAPINE
     Indication: Schizophrenia
     Route: 065
  3. RISPERIDONE [Suspect]
     Active Substance: RISPERIDONE
     Indication: Schizophrenia
     Route: 065
  4. PROMETHAZINE [Suspect]
     Active Substance: PROMETHAZINE HYDROCHLORIDE
     Indication: Schizophrenia
     Route: 065
  5. MELPERONE [Suspect]
     Active Substance: MELPERONE
     Indication: Schizophrenia
     Route: 065

REACTIONS (7)
  - Selective eating disorder [Unknown]
  - Dementia [Unknown]
  - Weight decreased [Unknown]
  - Tardive dyskinesia [Unknown]
  - Dysphagia [Unknown]
  - Marasmus [Unknown]
  - Aspiration [Unknown]
